FAERS Safety Report 6810097-7 (Version None)
Quarter: 2010Q2

REPORT INFORMATION
  Report Type: 
  Country: None (occurrence: None)
  Receive Date: 20100630
  Receipt Date: 20100622
  Transmission Date: 20101027
  Serious: Yes (Other)
  Sender: FDA-Public Use
  Company Number: TW-WATSON-2010-08496

PATIENT
  Age: 38 Year
  Sex: Female

DRUGS (2)
  1. HALOPERIDOL LACTATE [Suspect]
     Indication: PSYCHOTIC DISORDER
     Dosage: 50 MG, SINGLE
     Route: 030
  2. AMISULPRIDE [Suspect]
     Indication: PSYCHOTIC DISORDER
     Dosage: 1400 MG, DAILY
     Route: 030

REACTIONS (2)
  - CARDIAC ARREST [None]
  - ELECTROCARDIOGRAM QT PROLONGED [None]
